FAERS Safety Report 16040410 (Version 1)
Quarter: 2019Q1

REPORT INFORMATION
  Report Type: Spontaneous
  Country: US (occurrence: US)
  Receive Date: 20190306
  Receipt Date: 20190306
  Transmission Date: 20190418
  Serious: Yes (Hospitalization)
  Sender: FDA-Public Use
  Company Number: PHEH2019US009024

PATIENT
  Sex: Male

DRUGS (2)
  1. ALPRAZOLAM SANDOZ [Suspect]
     Active Substance: ALPRAZOLAM
     Indication: PRODUCT USED FOR UNKNOWN INDICATION
     Dosage: 0.5 MG, UNK
     Route: 065
     Dates: start: 2015
  2. ALPRAZOLAM SANDOZ [Suspect]
     Active Substance: ALPRAZOLAM
     Dosage: UNK (INCREASED DOSE)
     Route: 065

REACTIONS (1)
  - Drug ineffective [Unknown]
